FAERS Safety Report 23571403 (Version 2)
Quarter: 2024Q2

REPORT INFORMATION
  Report Type: Report from Study
  Country: US (occurrence: US)
  Receive Date: 20240227
  Receipt Date: 20240405
  Transmission Date: 20240716
  Serious: Yes (Other)
  Sender: FDA-Public Use
  Company Number: US-PFIZER INC-PV202400025936

PATIENT
  Age: 61 Year
  Sex: Female

DRUGS (5)
  1. BRAFTOVI [Suspect]
     Active Substance: ENCORAFENIB
     Indication: Malignant melanoma
     Dosage: 300 MG (4 X 75 MG CAPSULES) ONCE DAILY BY MOUTH
     Route: 048
     Dates: start: 20240205
  2. BRAFTOVI [Suspect]
     Active Substance: ENCORAFENIB
     Dosage: 300 MG, ONCE DAILY
     Route: 048
     Dates: start: 20240205
  3. MEKTOVI [Suspect]
     Active Substance: BINIMETINIB
     Indication: Malignant melanoma
     Dosage: 30 MG (2 X 15 MG TABLETS) TWICE DAILY BY MOUTH
     Route: 048
     Dates: start: 20240205
  4. MEKTOVI [Suspect]
     Active Substance: BINIMETINIB
     Dosage: 30 MG, 2X/DAY
     Route: 048
     Dates: start: 20240205
  5. TALTZ [Concomitant]
     Active Substance: IXEKIZUMAB
     Dosage: TALTZ SINGLE DOSE PFS , TALTZ PF AUTO INJ (1-PAK)

REACTIONS (5)
  - Retinal oedema [Recovered/Resolved]
  - Vision blurred [Recovered/Resolved]
  - Middle insomnia [Not Recovered/Not Resolved]
  - Fatigue [Not Recovered/Not Resolved]
  - Off label use [Unknown]

NARRATIVE: CASE EVENT DATE: 20240201
